FAERS Safety Report 18261203 (Version 1)
Quarter: 2020Q3

REPORT INFORMATION
  Report Type: Spontaneous
  Country: MY (occurrence: MY)
  Receive Date: 20200914
  Receipt Date: 20200914
  Transmission Date: 20201103
  Serious: Yes (Death, Hospitalization)
  Sender: FDA-Public Use
  Company Number: MY-ASTELLAS-2020US028586

PATIENT
  Sex: Male

DRUGS (2)
  1. XTANDI [Suspect]
     Active Substance: ENZALUTAMIDE
     Indication: PRODUCT USED FOR UNKNOWN INDICATION
     Route: 048
     Dates: start: 20200813, end: 20200813
  2. XTANDI [Suspect]
     Active Substance: ENZALUTAMIDE
     Dosage: 640 MG, ONCE DAILY (16 CAPSULESX40 MG)
     Route: 048
     Dates: start: 20200814, end: 20200814

REACTIONS (3)
  - Product use complaint [Unknown]
  - Overdose [Fatal]
  - Diarrhoea [Unknown]

NARRATIVE: CASE EVENT DATE: 20200814
